FAERS Safety Report 6368928-3 (Version None)
Quarter: 2009Q3

REPORT INFORMATION
  Report Type: 
  Country: None (occurrence: None)
  Receive Date: 20090918
  Receipt Date: 20090918
  Transmission Date: 20100115
  Serious: Yes (Other)
  Sender: FDA-Public Use
  Company Number: None

PATIENT
  Sex: Female
  Weight: 81.6475 kg

DRUGS (2)
  1. CLARITHROMYCIN [Suspect]
     Indication: BACTERIAL INFECTION
     Dosage: 1 TWICE A DAY
     Dates: start: 20090528
  2. METRONIDAZOLE [Suspect]
     Dosage: 1 TWICE A DAY

REACTIONS (7)
  - CHEST PAIN [None]
  - EYE PAIN [None]
  - FACIAL PAIN [None]
  - LOCAL SWELLING [None]
  - OROPHARYNGEAL PAIN [None]
  - PAIN IN EXTREMITY [None]
  - SWOLLEN TONGUE [None]
